FAERS Safety Report 8808710 (Version 1)
Quarter: 2012Q4

REPORT INFORMATION
  Report Type: Report from Study
  Country: US (occurrence: US)
  Receive Date: 20120926
  Receipt Date: 20120926
  Transmission Date: 20130627
  Serious: Yes (Hospitalization)
  Sender: FDA-Public Use
  Company Number: US-JNJFOC-20120803990

PATIENT
  Sex: Male

DRUGS (13)
  1. ABIRATERONE ACETATE [Suspect]
     Route: 048
  2. ABIRATERONE ACETATE [Suspect]
     Indication: PROSTATE CANCER
     Route: 048
     Dates: start: 20111108, end: 20120408
  3. SUNITINIB [Suspect]
     Indication: PROSTATE CANCER
     Route: 048
  4. SUNITINIB [Suspect]
     Indication: PROSTATE CANCER
     Route: 048
     Dates: start: 20120228, end: 20120403
  5. DASATINIB [Suspect]
     Indication: PROSTATE CANCER
     Route: 048
  6. PREDNISONE [Concomitant]
     Indication: PROSTATE CANCER
     Route: 065
  7. ALLOPURINOL [Concomitant]
     Route: 065
  8. CALCIUM [Concomitant]
     Route: 048
  9. CRESTOR [Concomitant]
     Route: 065
  10. LUPRON [Concomitant]
     Route: 030
  11. INDOMETHACIN [Concomitant]
     Route: 048
  12. POTASSIUM [Concomitant]
     Route: 048
  13. TRIAMTERENE/HCTZ [Concomitant]
     Route: 048

REACTIONS (1)
  - Gastritis [Unknown]
